FAERS Safety Report 7051596-5 (Version None)
Quarter: 2010Q4

REPORT INFORMATION
  Report Type: 
  Country: None (occurrence: None)
  Receive Date: 20101019
  Receipt Date: 20101005
  Transmission Date: 20110411
  Serious: Yes (Hospitalization)
  Sender: FDA-Public Use
  Company Number: FR-ROCHE-729469

PATIENT
  Sex: Female
  Weight: 51 kg

DRUGS (24)
  1. MYCOPHENOLATE MOFETIL [Suspect]
     Route: 048
     Dates: start: 20100511
  2. EVEROLIMUS [Suspect]
     Dosage: LAST DOSE PRIOR TO SAE: 23 SEP 2010
     Route: 048
     Dates: start: 20100516
  3. PREDNISONE [Suspect]
     Dosage: LAST DOSE PRIOR TO SAE: 8 SEP 2010
     Route: 048
     Dates: start: 20100518
  4. ROVALCYTE [Concomitant]
     Dosage: TEMPORARILY DISCONTINUED FROM 28 JUN TO 05 JULY 2010
     Dates: start: 20100521, end: 20100628
  5. AMLODIPINE [Concomitant]
     Dosage: TEMPORARILY DISCONTINUED FROM 29 JUN TO 6 JUL 2010
     Dates: start: 20100517, end: 20100629
  6. ELISOR [Concomitant]
     Dates: start: 20100522
  7. PHOSPHONEUROS [Concomitant]
     Dosage: TEMPORARILY DISCONTINUED FROM 30 JUN TO 1 JULY 2010
     Dates: start: 20100526, end: 20100630
  8. DIFFU K [Concomitant]
     Dosage: TDD: 6 DOSES
     Dates: start: 20100626
  9. MAG 2 [Concomitant]
     Dosage: TDD: 2 DOSES
     Dates: start: 20100702
  10. INIPOMP [Concomitant]
     Dates: start: 20100512
  11. BICARBONATE DE SODIUM [Concomitant]
     Dates: start: 20100702
  12. INSULATARD [Concomitant]
     Dosage: TDD: 20+9 IU
     Dates: start: 20100703, end: 20100806
  13. NOVORAPID [Concomitant]
     Dosage: TDD: 8+8+8 IU
     Dates: start: 20100628
  14. PIPERACILLIN AND TAZOBACTAM [Concomitant]
     Dates: start: 20100628, end: 20100719
  15. CIFLOX [Concomitant]
     Dates: start: 20100628, end: 20100718
  16. XYZAL [Concomitant]
     Dates: start: 20100919
  17. LANTUS [Concomitant]
     Dates: start: 20100901
  18. EPREX [Concomitant]
     Dates: start: 20100803
  19. LEXOMIL [Concomitant]
     Route: 048
     Dates: start: 20100923
  20. PROGRAF [Concomitant]
     Route: 048
  21. NOVOMIX [Concomitant]
     Route: 058
     Dates: start: 20100811
  22. MABTHERA [Concomitant]
     Dosage: FREQ: DAILY
     Route: 042
     Dates: start: 20100926, end: 20100926
  23. IMMUNE GLOBULIN IV NOS [Concomitant]
     Dosage: REPORTED AS: CLAIRYG FREQ: DAILY
     Route: 042
     Dates: start: 20100926, end: 20100928
  24. NOVORAPID [Concomitant]
     Dosage: FREQ: DAILY
     Route: 058
     Dates: start: 20100721

REACTIONS (2)
  - ESCHERICHIA SEPSIS [None]
  - TRANSPLANT REJECTION [None]
